FAERS Safety Report 9681895 (Version 1)
Quarter: 2013Q4

REPORT INFORMATION
  Report Type: Report from Study
  Country: US (occurrence: US)
  Receive Date: 20131111
  Receipt Date: 20131111
  Transmission Date: 20140711
  Serious: Yes (Death)
  Sender: FDA-Public Use
  Company Number: US-ABBVIE-13P-163-1167795-00

PATIENT
  Sex: Male

DRUGS (1)
  1. ZEMPLAR [Suspect]
     Indication: HYPERPARATHYROIDISM SECONDARY
     Dates: start: 201106

REACTIONS (6)
  - Cardiac failure congestive [Fatal]
  - Type 2 diabetes mellitus [Fatal]
  - Peripheral vascular disorder [Fatal]
  - Renal failure chronic [Fatal]
  - Coronary artery disease [Fatal]
  - Pneumonia [Fatal]
